FAERS Safety Report 5907349-1 (Version None)
Quarter: 2008Q3

REPORT INFORMATION
  Report Type: 
  Country: None (occurrence: None)
  Receive Date: 20080929
  Receipt Date: 20080915
  Transmission Date: 20090109
  Serious: Yes (Hospitalization)
  Sender: FDA-Public Use
  Company Number: 2008AL010528

PATIENT
  Age: 16 Year
  Sex: Female

DRUGS (2)
  1. PHENOBARBITAL TABLETS USP, 30 MG (PUREPAC) (PHENOBARBITAL TABLETS USP, [Suspect]
     Indication: PROPHYLAXIS
     Dosage: 50 MG; QD
     Dates: start: 19990101, end: 20060901
  2. METHYLPREDNISOLONE 16MG TAB [Concomitant]

REACTIONS (6)
  - BONE MARROW FAILURE [None]
  - CEREBELLAR ATROPHY [None]
  - CHIMERISM [None]
  - PANCYTOPENIA [None]
  - STEM CELL TRANSPLANT [None]
  - VASCULITIS CEREBRAL [None]
